FAERS Safety Report 6718668-3 (Version None)
Quarter: 2010Q2

REPORT INFORMATION
  Report Type: 
  Country: None (occurrence: None)
  Receive Date: 20100506
  Receipt Date: 20100423
  Transmission Date: 20101027
  Serious: Yes (Hospitalization)
  Sender: FDA-Public Use
  Company Number: POMP-1000487

PATIENT
  Age: 3 Year
  Sex: Male
  Weight: 14.7 kg

DRUGS (35)
  1. MYOZYME [Suspect]
     Indication: GLYCOGEN STORAGE DISEASE TYPE II
     Dosage: 40 MG/KG, Q2W, INTRAVENOUS ; 20 MG/KG, Q2W, INTRAVENOUS ; 30 MG/KG, Q2W, INTRAVENOUS
     Route: 042
     Dates: start: 20060911, end: 20070501
  2. MYOZYME [Suspect]
     Indication: GLYCOGEN STORAGE DISEASE TYPE II
     Dosage: 40 MG/KG, Q2W, INTRAVENOUS ; 20 MG/KG, Q2W, INTRAVENOUS ; 30 MG/KG, Q2W, INTRAVENOUS
     Route: 042
     Dates: start: 20070509, end: 20070701
  3. MYOZYME [Suspect]
     Indication: GLYCOGEN STORAGE DISEASE TYPE II
     Dosage: 40 MG/KG, Q2W, INTRAVENOUS ; 20 MG/KG, Q2W, INTRAVENOUS ; 30 MG/KG, Q2W, INTRAVENOUS
     Route: 042
     Dates: start: 20070801
  4. BENADRYL [Concomitant]
  5. SOLU-CORTEF [Concomitant]
  6. TYLENOL (PARACETAMOL) [Concomitant]
  7. VENOFER [Concomitant]
  8. CALCIUM GLUBIONATE (CALCIUM GLUBIONATE) [Concomitant]
  9. EUCERIN (OMEGA-6 FATTY ACIDS) [Concomitant]
  10. EPIPEN (EPINEPHRINE HYDROCHLORIDE) [Concomitant]
  11. PROCRIT [Concomitant]
  12. ERGOCALCIFEROL (CALCIUM PHOSPHATE, CALCIUM SODIUM LACTATE) [Concomitant]
  13. FLECAINIDE ACETATE [Concomitant]
  14. HYDROCORTONE [Concomitant]
  15. IBUPROFEN [Concomitant]
  16. IMMUNE GLOBULIN (IMMUNOGLOBULIN) [Concomitant]
  17. PREVACID [Concomitant]
  18. XOPENEX [Concomitant]
  19. METHOTREXATE [Concomitant]
  20. SULFAMETHOXAZOLE W (SULFAMETHOXAZOLE, TRIMETHOPRIM) [Concomitant]
  21. SPIRONOLACTONE [Concomitant]
  22. LIDOCAINE [Concomitant]
  23. LANSOPRAZOLE [Concomitant]
  24. BACTRIM [Concomitant]
  25. MUPIROCIN [Concomitant]
  26. NYSTATIN [Concomitant]
  27. LACTOBACILLUS RHAMNOSUS (LACTOBACILLUS RHAMNOSUS) [Concomitant]
  28. SODIUM CHLORIDE 0.9% [Concomitant]
  29. ETHANOL (ETHANOL) [Concomitant]
  30. POTASSIUM PHOSPHATE DIBASIC (POTASSIUM PHOSPHATE DIBASIC) [Concomitant]
  31. ROCEPHIN [Concomitant]
  32. BECLOMETHASONE DIPROPIONATE [Concomitant]
  33. EPOGEN [Concomitant]
  34. VITAMIN D NOS (VITAMIN D NOS) [Concomitant]
  35. RITUXIMAB (RITUXIMAB) [Concomitant]

REACTIONS (25)
  - ANAEMIA [None]
  - BACTERIAL INFECTION [None]
  - BLOOD GLUCOSE INCREASED [None]
  - CRYING [None]
  - CULTURE POSITIVE [None]
  - DEVICE RELATED INFECTION [None]
  - EMOTIONAL DISORDER [None]
  - FALL [None]
  - GASTROENTERITIS VIRAL [None]
  - HEART RATE INCREASED [None]
  - INCREASED UPPER AIRWAY SECRETION [None]
  - LYMPHOCYTE PERCENTAGE DECREASED [None]
  - MONOCYTE PERCENTAGE DECREASED [None]
  - MORAXELLA INFECTION [None]
  - NEUTROPHIL PERCENTAGE INCREASED [None]
  - OXYGEN SATURATION DECREASED [None]
  - PILOERECTION [None]
  - PSEUDOMONAL BACTERAEMIA [None]
  - RESPIRATORY DISTRESS [None]
  - RETCHING [None]
  - STAPHYLOCOCCAL INFECTION [None]
  - TRACHEITIS [None]
  - TRACHEOBRONCHITIS [None]
  - TREMOR [None]
  - UPPER LIMB FRACTURE [None]
